FAERS Safety Report 10746974 (Version 1)
Quarter: 2015Q1

REPORT INFORMATION
  Report Type: Spontaneous
  Country: GB (occurrence: GB)
  Receive Date: 20150129
  Receipt Date: 20150129
  Transmission Date: 20150721
  Serious: Yes (Hospitalization)
  Sender: FDA-Public Use
  Company Number: GB-AMGEN-GBRSP2014098821

PATIENT
  Age: 59 Year
  Sex: Female

DRUGS (24)
  1. BUPRENORPHINE [Concomitant]
     Active Substance: BUPRENORPHINE
     Dosage: 1 DF, WEEKLY 5UG/HOUR
  2. CITALOPRAM [Concomitant]
     Active Substance: CITALOPRAM HYDROBROMIDE
     Dosage: 10 MG, 1X/DAY
  3. METFORMIN [Concomitant]
     Active Substance: METFORMIN HYDROCHLORIDE
     Dosage: 500 MG, 3X/DAY
  4. ENBREL [Suspect]
     Active Substance: ETANERCEPT
     Indication: PRODUCT USED FOR UNKNOWN INDICATION
     Dosage: 50 MG, UNK
     Route: 065
  5. TIBOLONE [Concomitant]
     Active Substance: TIBOLONE
     Dosage: 2.5 MG, 1X/DAY
  6. TOLTERODINE [Concomitant]
     Active Substance: TOLTERODINE
     Dosage: 4 MG, 1X/DAY
  7. VISCOTEARS [Concomitant]
     Active Substance: CARBOMER
     Dosage: 2MG/G LIQUID GEL APPLIED FREQUENTLY THROUGHOUT THE DAY
  8. PEPTAC                             /00706001/ [Concomitant]
     Dosage: 10 ML FOUR TIMES A DAY AS REQUIRED
  9. BIOTENE                            /07344401/ [Concomitant]
     Dosage: 75 ML, UNK
  10. BUPRENORPHINE [Concomitant]
     Active Substance: BUPRENORPHINE
     Dosage: 1 DF, WEEKLY 10 UG/HOUR
     Route: 062
  11. ISPAGHULA EXTRACT\PSYLLIUM [Concomitant]
     Active Substance: PLANTAGO OVATA SEED\PLANTAGO SEED
     Dosage: 3.5G PER SACHET AND ONE SACHET TO BE TAKEN TWICE DAILY
  12. IRBESARTAN. [Concomitant]
     Active Substance: IRBESARTAN
     Dosage: 75 MG, ONCE DAILY IN THE MORNING
  13. TRAMADOL [Concomitant]
     Active Substance: TRAMADOL
     Dosage: 50MG ONE OR TWO TO BE TAKEN 4 TIMES A DAY
  14. OMEPRAZOLE. [Concomitant]
     Active Substance: OMEPRAZOLE
     Dosage: 20 MG, 1X/DAY
  15. VOLTAROL [Concomitant]
     Active Substance: DICLOFENAC SODIUM
     Dosage: 1.16 PERCENT EMUGEL AS NEEDED
  16. ADIZEM [Concomitant]
     Active Substance: DILTIAZEM HYDROCHLORIDE
     Dosage: 90 MG, 1X/DAY
  17. CLENIL                             /00212602/ [Concomitant]
     Dosage: 2 DF, 2X/DAY 100 MUG, TWO PUFFS 2X DAILY
  18. FOLIC ACID. [Concomitant]
     Active Substance: FOLIC ACID
     Dosage: 5 MG, WEEKLY
  19. LACRI-LUBE [Concomitant]
     Dosage: 3.5 G,  AT NIGHT
  20. MEBEVERINE [Concomitant]
     Active Substance: MEBEVERINE
     Indication: ABDOMINAL PAIN
     Dosage: 135 MG, TWICE DAILY AND AS NEEDED
  21. ACETYLSALICYLIC ACID [Concomitant]
     Active Substance: ASPIRIN
     Dosage: 75 MG, 1X/DAY
  22. ATORVASTATIN [Concomitant]
     Active Substance: ATORVASTATIN
     Dosage: 20 MG, 1X/DAY AT NIGHT
  23. PARACETAMOL [Concomitant]
     Active Substance: ACETAMINOPHEN
     Dosage: 1000 MG, 3X/DAY
  24. METHOTREXATE [Concomitant]
     Active Substance: METHOTREXATE
     Dosage: 20MG/0.4ML SOLUTION FOR INJECTION WEEKL

REACTIONS (7)
  - Eczema [Not Recovered/Not Resolved]
  - Pruritus [Not Recovered/Not Resolved]
  - Eczema weeping [Not Recovered/Not Resolved]
  - Fatigue [Not Recovered/Not Resolved]
  - Depressed mood [Not Recovered/Not Resolved]
  - Skin haemorrhage [Not Recovered/Not Resolved]
  - Dermatitis psoriasiform [Not Recovered/Not Resolved]
